FAERS Safety Report 12956443 (Version 2)
Quarter: 2016Q4

REPORT INFORMATION
  Report Type: Spontaneous
  Country: JP (occurrence: JP)
  Receive Date: 20161118
  Receipt Date: 20161213
  Transmission Date: 20170207
  Serious: Yes (Other)
  Sender: FDA-Public Use
  Company Number: JP-PFIZER INC-2016501302

PATIENT
  Age: 81 Year
  Sex: Male
  Weight: 66 kg

DRUGS (16)
  1. ITRACONAZOLE. [Suspect]
     Active Substance: ITRACONAZOLE
     Indication: BRONCHOPULMONARY ASPERGILLOSIS
     Dosage: 100 MG, 1X/DAY
     Route: 048
     Dates: start: 20160808, end: 20160810
  2. DIGOSIN [Concomitant]
     Active Substance: DIGOXIN
  3. AUGMENTIN [Concomitant]
     Active Substance: AMOXICILLIN\CLAVULANATE POTASSIUM
     Indication: INFECTED CYST
     Dosage: UNK
     Dates: start: 201608
  4. WARFARIN [Concomitant]
     Active Substance: WARFARIN
     Dosage: 1.5 MG, UNK
  5. VFEND [Suspect]
     Active Substance: VORICONAZOLE
     Indication: BRONCHOPULMONARY ASPERGILLOSIS
     Dosage: 200 MG, 2X/DAY
     Route: 041
     Dates: start: 20160802, end: 20160808
  6. ALENDRONATE ACCORD [Concomitant]
  7. PISULCIN [Concomitant]
     Active Substance: AMPICILLIN SODIUM\SULBACTAM SODIUM
     Dosage: UNK
     Dates: end: 201608
  8. PASETOCIN /00249601/ [Concomitant]
     Active Substance: AMOXICILLIN
     Indication: INFECTED CYST
     Dosage: UNK
     Dates: start: 201608
  9. VICTOZA [Concomitant]
     Active Substance: LIRAGLUTIDE
  10. FAMOTIDINE. [Concomitant]
     Active Substance: FAMOTIDINE
  11. SOLANAX [Concomitant]
     Active Substance: ALPRAZOLAM
  12. OFEV [Concomitant]
     Active Substance: NINTEDANIB
  13. ISOSORBIDE. [Concomitant]
     Active Substance: ISOSORBIDE
  14. WARFARIN [Concomitant]
     Active Substance: WARFARIN
     Dosage: 1 MG, UNK
  15. WARFARIN [Concomitant]
     Active Substance: WARFARIN
     Dosage: 1.5 MG, UNK
  16. CALONAL [Concomitant]
     Active Substance: ACETAMINOPHEN

REACTIONS (1)
  - Rhabdomyolysis [Recovered/Resolved]

NARRATIVE: CASE EVENT DATE: 201608
